FAERS Safety Report 21940849 (Version 2)
Quarter: 2023Q1

REPORT INFORMATION
  Report Type: Report from Study
  Country: ES (occurrence: ES)
  Receive Date: 20230201
  Receipt Date: 20230227
  Transmission Date: 20230418
  Serious: Yes (Death)
  Sender: FDA-Public Use
  Company Number: ES-ABBVIE-4290496

PATIENT
  Age: 79 Year
  Sex: Female

DRUGS (2)
  1. CARBIDOPA\LEVODOPA [Suspect]
     Active Substance: CARBIDOPA\LEVODOPA
     Indication: Parkinson^s disease
     Dosage: MORNING DOSE 9.1 ML, CONTINUOUS DOSE 2.8 ML/H, EXTRA DOSE 3 ML?FREQUENCY TEXT: 16 HOURS A DAY
     Route: 050
     Dates: start: 20120119
  2. CARBIDOPA\LEVODOPA [Suspect]
     Active Substance: CARBIDOPA\LEVODOPA

REACTIONS (2)
  - Oxygen saturation abnormal [Fatal]
  - Pyrexia [Fatal]

NARRATIVE: CASE EVENT DATE: 20230120
